FAERS Safety Report 13945762 (Version 5)
Quarter: 2018Q2

REPORT INFORMATION
  Report Type: Spontaneous
  Country: US (occurrence: US)
  Receive Date: 20170907
  Receipt Date: 20180604
  Transmission Date: 20180711
  Serious: Yes (Hospitalization)
  Sender: FDA-Public Use
  Company Number: US-DSJP-DSU-2017-135135

PATIENT

DRUGS (1)
  1. BENICAR [Suspect]
     Active Substance: OLMESARTAN MEDOXOMIL
     Indication: HYPERTENSION
     Dosage: 20 MG, TABLET
     Route: 048
     Dates: start: 20150120, end: 20170905

REACTIONS (9)
  - Gastrointestinal disorder [Recovered/Resolved]
  - Hepatic steatosis [Unknown]
  - Gastroenteritis viral [Unknown]
  - Weight decreased [Unknown]
  - Gastritis erosive [Unknown]
  - Gastrooesophageal reflux disease [Unknown]
  - Hiatus hernia [Unknown]
  - Haemorrhoids [Unknown]
  - Large intestine polyp [Unknown]

NARRATIVE: CASE EVENT DATE: 2015
